FAERS Safety Report 4631489-0 (Version None)
Quarter: 2005Q2

REPORT INFORMATION
  Report Type: 
  Country: None (occurrence: None)
  Receive Date: 20050407
  Receipt Date: 20050223
  Transmission Date: 20051028
  Serious: No
  Sender: FDA-Public Use
  Company Number: 10746

PATIENT

DRUGS (2)
  1. PACLITAXEL [Suspect]
     Indication: NON-SMALL CELL LUNG CANCER
     Dosage: 80 MG/M2 PER_CYCLE
  2. CARBOPLATIN [Suspect]
     Indication: NON-SMALL CELL LUNG CANCER
     Dosage: 6 MG/ML PER_CYCLE

REACTIONS (4)
  - DIARRHOEA [None]
  - HYPONATRAEMIA [None]
  - LETHARGY [None]
  - PERFORMANCE STATUS DECREASED [None]
